FAERS Safety Report 6408960-4 (Version None)
Quarter: 2009Q4

REPORT INFORMATION
  Report Type: 
  Country: None (occurrence: None)
  Receive Date: 20091021
  Receipt Date: 20091014
  Transmission Date: 20100525
  Serious: Yes (Other)
  Sender: FDA-Public Use
  Company Number: JP-ALLERGAN-0914411US

PATIENT
  Sex: Female

DRUGS (3)
  1. BOTOX [Suspect]
     Indication: DRUG USE FOR UNKNOWN INDICATION
     Dosage: UNK
     Route: 030
  2. DEPAS [Concomitant]
     Route: 048
  3. AGENTS FOR EPIDERMIS [Concomitant]
     Route: 065

REACTIONS (1)
  - CONVULSION [None]
